FAERS Safety Report 18694785 (Version 1)
Quarter: 2021Q1

REPORT INFORMATION
  Report Type: Spontaneous
  Country: US (occurrence: US)
  Receive Date: 20210102
  Receipt Date: 20210102
  Transmission Date: 20210419
  Serious: Yes (Hospitalization)
  Sender: FDA-Public Use
  Company Number: None

PATIENT
  Age: 77 Year
  Sex: Female

DRUGS (7)
  1. TIKOSYN [Concomitant]
     Active Substance: DOFETILIDE
  2. VITAMIN B50 [Concomitant]
  3. ELIQUIS [Concomitant]
     Active Substance: APIXABAN
  4. FORTEO [Suspect]
     Active Substance: TERIPARATIDE
     Indication: OSTEOPOROSIS
     Route: 058
     Dates: start: 20190626
  5. VITAMIN C [Concomitant]
     Active Substance: ASCORBIC ACID
  6. MULTIVITAMIN [Concomitant]
     Active Substance: VITAMINS
  7. BIOTIN [Concomitant]
     Active Substance: BIOTIN

REACTIONS (4)
  - Dyspnoea [None]
  - Therapy interrupted [None]
  - Incorrect product administration duration [None]
  - Expired product administered [None]
